FAERS Safety Report 25284563 (Version 1)
Quarter: 2025Q2

REPORT INFORMATION
  Report Type: Spontaneous
  Country: FR (occurrence: FR)
  Receive Date: 20250508
  Receipt Date: 20250508
  Transmission Date: 20250716
  Serious: Yes (Other)
  Sender: MYLAN
  Company Number: None

PATIENT
  Age: 47 Year
  Sex: Male

DRUGS (12)
  1. PREGABALIN [Suspect]
     Active Substance: PREGABALIN
     Indication: Product used for unknown indication
     Dosage: UNK, QD (AT LEAST 600 MG/DAY)
     Dates: start: 202501
  2. PREGABALIN [Suspect]
     Active Substance: PREGABALIN
     Dosage: UNK, QD (AT LEAST 600 MG/DAY)
     Route: 048
     Dates: start: 202501
  3. PREGABALIN [Suspect]
     Active Substance: PREGABALIN
     Dosage: UNK, QD (AT LEAST 600 MG/DAY)
     Route: 048
     Dates: start: 202501
  4. PREGABALIN [Suspect]
     Active Substance: PREGABALIN
     Dosage: UNK, QD (AT LEAST 600 MG/DAY)
     Dates: start: 202501
  5. SKENAN [Suspect]
     Active Substance: MORPHINE SULFATE
     Indication: Product used for unknown indication
     Dosage: UNK, QD (AT LEAST 480 MG/DAY)
     Dates: start: 2023
  6. SKENAN [Suspect]
     Active Substance: MORPHINE SULFATE
     Dosage: UNK, QD (AT LEAST 480 MG/DAY)
     Route: 048
     Dates: start: 2023
  7. SKENAN [Suspect]
     Active Substance: MORPHINE SULFATE
     Dosage: UNK, QD (AT LEAST 480 MG/DAY)
     Route: 048
     Dates: start: 2023
  8. SKENAN [Suspect]
     Active Substance: MORPHINE SULFATE
     Dosage: UNK, QD (AT LEAST 480 MG/DAY)
     Dates: start: 2023
  9. RIVOTRIL [Suspect]
     Active Substance: CLONAZEPAM
     Indication: Product used for unknown indication
     Dosage: UNK, QD (AT LEAST 10 DROPS/DAY))
     Dates: start: 202501
  10. RIVOTRIL [Suspect]
     Active Substance: CLONAZEPAM
     Dosage: UNK, QD (AT LEAST 10 DROPS/DAY))
     Route: 048
     Dates: start: 202501
  11. RIVOTRIL [Suspect]
     Active Substance: CLONAZEPAM
     Dosage: UNK, QD (AT LEAST 10 DROPS/DAY))
     Route: 048
     Dates: start: 202501
  12. RIVOTRIL [Suspect]
     Active Substance: CLONAZEPAM
     Dosage: UNK, QD (AT LEAST 10 DROPS/DAY))
     Dates: start: 202501

REACTIONS (1)
  - Drug use disorder [Not Recovered/Not Resolved]
